FAERS Safety Report 6547663-2 (Version None)
Quarter: 2010Q1

REPORT INFORMATION
  Report Type: 
  Country: None (occurrence: None)
  Receive Date: 20100123
  Receipt Date: 20100113
  Transmission Date: 20100710
  Serious: Yes (Hospitalization, Other)
  Sender: FDA-Public Use
  Company Number: US-JNJFOC-20091205449

PATIENT
  Sex: Female
  Weight: 47.63 kg

DRUGS (13)
  1. TYLENOL W/ CODEINE [Suspect]
     Indication: FIBROMYALGIA
     Route: 065
  2. AMITRIPTYLINE HCL [Interacting]
     Indication: DEPRESSION
     Route: 048
  3. SAVELLA [Suspect]
     Indication: FIBROMYALGIA
     Route: 048
  4. SAVELLA [Suspect]
     Route: 048
  5. SAVELLA [Suspect]
     Route: 048
  6. SAVELLA [Suspect]
     Route: 048
  7. LIPITOR [Concomitant]
     Indication: BLOOD CHOLESTEROL INCREASED
  8. METOPROLOL TARTRATE [Concomitant]
     Indication: HYPERTENSION
  9. ZETIA [Concomitant]
     Indication: BLOOD CHOLESTEROL INCREASED
  10. ATIVAN [Concomitant]
     Indication: ANXIETY
  11. ATIVAN [Concomitant]
  12. NORVASC [Concomitant]
     Indication: HYPERTENSION
  13. ASPIRIN [Concomitant]

REACTIONS (2)
  - DRUG INTERACTION [None]
  - MENTAL STATUS CHANGES [None]
